FAERS Safety Report 9027129 (Version 1)
Quarter: 2013Q1

REPORT INFORMATION
  Report Type: Spontaneous
  Country: US (occurrence: US)
  Receive Date: 20130123
  Receipt Date: 20130123
  Transmission Date: 20140127
  Serious: No
  Sender: FDA-Public Use
  Company Number: US-009507513-1301USA008550

PATIENT
  Sex: Female

DRUGS (1)
  1. ZIOPTAN [Suspect]
     Route: 047

REACTIONS (1)
  - Cystoid macular oedema [Unknown]
